FAERS Safety Report 15918630 (Version 2)
Quarter: 2019Q1

REPORT INFORMATION
  Report Type: Report from Study
  Country: None (occurrence: CA)
  Receive Date: 20190205
  Receipt Date: 20190304
  Transmission Date: 20190417
  Serious: Yes (Other)
  Sender: FDA-Public Use
  Company Number: CA-ABBVIE-19K-028-2650238-00

PATIENT
  Age: 13 Year
  Sex: Male
  Weight: 42 kg

DRUGS (10)
  1. ENBREL [Concomitant]
     Active Substance: ETANERCEPT
     Dates: start: 201602, end: 201607
  2. METHOTREXATE. [Concomitant]
     Active Substance: METHOTREXATE
     Dates: start: 201406, end: 201408
  3. HUMIRA [Suspect]
     Active Substance: ADALIMUMAB
     Route: 058
     Dates: start: 2018, end: 20180928
  4. NEXIUM [Concomitant]
     Active Substance: ESOMEPRAZOLE MAGNESIUM
     Indication: PRODUCT USED FOR UNKNOWN INDICATION
     Dates: start: 201406, end: 201902
  5. ENBREL [Concomitant]
     Active Substance: ETANERCEPT
     Indication: PRODUCT USED FOR UNKNOWN INDICATION
     Dates: start: 201412, end: 201602
  6. METHOTREXATE. [Concomitant]
     Active Substance: METHOTREXATE
     Indication: PRODUCT USED FOR UNKNOWN INDICATION
     Dates: start: 201404, end: 201406
  7. METHOTREXATE. [Concomitant]
     Active Substance: METHOTREXATE
     Dates: start: 201408, end: 201501
  8. ENBREL [Concomitant]
     Active Substance: ETANERCEPT
     Dates: start: 201607, end: 201609
  9. HUMIRA [Suspect]
     Active Substance: ADALIMUMAB
     Route: 058
  10. HUMIRA [Suspect]
     Active Substance: ADALIMUMAB
     Indication: PRODUCT USED FOR UNKNOWN INDICATION
     Route: 058
     Dates: start: 20170124, end: 201807

REACTIONS (3)
  - Juvenile angiofibroma [Recovered/Resolved]
  - Rhinorrhoea [Unknown]
  - Cough [Unknown]

NARRATIVE: CASE EVENT DATE: 20181005
